FAERS Safety Report 7530613-X (Version None)
Quarter: 2011Q2

REPORT INFORMATION
  Report Type: 
  Country: None (occurrence: None)
  Receive Date: 20110607
  Receipt Date: 20110525
  Transmission Date: 20111010
  Serious: Yes (Other)
  Sender: FDA-Public Use
  Company Number: US-JNJFOC-20110511505

PATIENT
  Sex: Female
  Weight: 90.27 kg

DRUGS (1)
  1. REMICADE [Suspect]
     Indication: RHEUMATOID ARTHRITIS
     Route: 042
     Dates: start: 20100101

REACTIONS (4)
  - CYSTITIS [None]
  - NEPHROLITHIASIS [None]
  - GASTROENTERITIS VIRAL [None]
  - UPPER RESPIRATORY TRACT INFECTION [None]
